FAERS Safety Report 4949962-4 (Version None)
Quarter: 2006Q1

REPORT INFORMATION
  Report Type: 
  Country: None (occurrence: None)
  Receive Date: 20060315
  Receipt Date: 20060224
  Transmission Date: 20060701
  Serious: Yes (Other)
  Sender: FDA-Public Use
  Company Number: USA0510112012

PATIENT
  Age: 21 Year
  Sex: Male

DRUGS (2)
  1. HUMATROPE [Suspect]
     Indication: MALIGNANT HISTIOCYTOSIS
     Dosage: SEE IMAGE
  2. THYROID HORMONE [Concomitant]

REACTIONS (4)
  - CONDITION AGGRAVATED [None]
  - CONVULSION [None]
  - HYPOGLYCAEMIA [None]
  - INSULIN-LIKE GROWTH FACTOR DECREASED [None]
